FAERS Safety Report 22108152 (Version 2)
Quarter: 2023Q1

REPORT INFORMATION
  Report Type: Spontaneous
  Country: BE (occurrence: BE)
  Receive Date: 20230317
  Receipt Date: 20230320
  Transmission Date: 20230418
  Serious: Yes (Death, Other)
  Sender: FDA-Public Use
  Company Number: BE-ROCHE-3292532

PATIENT
  Age: 61 Year
  Sex: Male

DRUGS (12)
  1. TRASTUZUMAB [Suspect]
     Active Substance: TRASTUZUMAB
     Indication: Metastases to liver
     Dosage: 8 MG/KG,Q3W(LOADING DOSE,SOLUTION FOR INFUSION)
     Route: 042
     Dates: start: 201808
  2. TRASTUZUMAB [Suspect]
     Active Substance: TRASTUZUMAB
     Indication: Oesophageal adenocarcinoma
     Dosage: 6 MILLIGRAM/KILOGRAM,Q3W (SOLUTION FOR INFUSION)
     Route: 042
     Dates: start: 201801
  3. TRASTUZUMAB [Suspect]
     Active Substance: TRASTUZUMAB
     Indication: Oesophageal cancer metastatic
     Dosage: 8 MG/KG,Q3W (SOLUTION FOR INFUSION)
     Route: 042
     Dates: start: 201801
  4. OXALIPLATIN [Suspect]
     Active Substance: OXALIPLATIN
     Indication: Oesophageal adenocarcinoma
     Dosage: 130 MILLIGRAM (130 MILLIGRAM/M2)
     Route: 065
     Dates: start: 201808
  5. OXALIPLATIN [Suspect]
     Active Substance: OXALIPLATIN
     Indication: Metastases to liver
     Dosage: 130 MILLIGRAM/SQ. METER, Q3W
     Route: 065
     Dates: start: 201801
  6. OXALIPLATIN [Suspect]
     Active Substance: OXALIPLATIN
     Indication: Oesophageal cancer metastatic
  7. CAPECITABINE [Suspect]
     Active Substance: CAPECITABINE
     Indication: Oesophageal adenocarcinoma
     Dosage: 1000 MILLIGRAM/M2, BID (FOR 14 DAYS)
     Route: 065
     Dates: start: 201808
  8. CAPECITABINE [Suspect]
     Active Substance: CAPECITABINE
     Indication: Metastases to liver
     Dosage: 2000MG/SQ.METER,QD,1000 MG/M2,2X/D
     Route: 065
     Dates: start: 201801
  9. CAPECITABINE [Suspect]
     Active Substance: CAPECITABINE
     Indication: Oesophageal cancer metastatic
  10. NIVOLUMAB [Concomitant]
     Active Substance: NIVOLUMAB
     Dosage: 3 MILLIGRAM/KILOGRAM, BIWEEKLY
     Route: 065
  11. RAMUCIRUMAB [Concomitant]
     Active Substance: RAMUCIRUMAB
     Dosage: UNK
     Route: 065
  12. PACLITAXEL [Concomitant]
     Active Substance: PACLITAXEL
     Dosage: UNK
     Route: 065

REACTIONS (8)
  - Death [Fatal]
  - Adenocarcinoma metastatic [Unknown]
  - Neuropathy peripheral [Unknown]
  - Disease progression [Unknown]
  - Dysphagia [Unknown]
  - Drug intolerance [Unknown]
  - Therapy partial responder [Unknown]
  - Off label use [Unknown]

NARRATIVE: CASE EVENT DATE: 20180101
